FAERS Safety Report 22950037 (Version 4)
Quarter: 2024Q1

REPORT INFORMATION
  Report Type: Report from Study
  Country: JP (occurrence: JP)
  Receive Date: 20230915
  Receipt Date: 20240227
  Transmission Date: 20240410
  Serious: Yes (Hospitalization, Other)
  Sender: FDA-Public Use
  Company Number: JP-GLAXOSMITHKLINE-JP2023JPN124635

PATIENT

DRUGS (107)
  1. MEPOLIZUMAB [Suspect]
     Active Substance: MEPOLIZUMAB
     Indication: Eosinophilic granulomatosis with polyangiitis
     Dosage: 300 MG
     Route: 058
     Dates: start: 20190213, end: 20190213
  2. MEPOLIZUMAB [Suspect]
     Active Substance: MEPOLIZUMAB
     Dosage: 300 MG
     Route: 058
     Dates: start: 20190308, end: 20190308
  3. MEPOLIZUMAB [Suspect]
     Active Substance: MEPOLIZUMAB
     Dosage: 300 MG
     Route: 058
     Dates: start: 20190405, end: 20190405
  4. MEPOLIZUMAB [Suspect]
     Active Substance: MEPOLIZUMAB
     Dosage: 300 MG
     Route: 058
     Dates: start: 20190508, end: 20190508
  5. MEPOLIZUMAB [Suspect]
     Active Substance: MEPOLIZUMAB
     Dosage: 300 MG
     Route: 058
     Dates: start: 20190612, end: 20190612
  6. MEPOLIZUMAB [Suspect]
     Active Substance: MEPOLIZUMAB
     Dosage: 300 MG
     Route: 058
     Dates: start: 20190710, end: 20190710
  7. MEPOLIZUMAB [Suspect]
     Active Substance: MEPOLIZUMAB
     Dosage: 300 MG
     Route: 058
     Dates: start: 20190807, end: 20190807
  8. MEPOLIZUMAB [Suspect]
     Active Substance: MEPOLIZUMAB
     Dosage: 300 MG
     Route: 058
     Dates: start: 20190904, end: 20190904
  9. MEPOLIZUMAB [Suspect]
     Active Substance: MEPOLIZUMAB
     Dosage: 300 MG
     Route: 058
     Dates: start: 20191002, end: 20191002
  10. MEPOLIZUMAB [Suspect]
     Active Substance: MEPOLIZUMAB
     Dosage: 300 MG
     Route: 058
     Dates: start: 20191030, end: 20191030
  11. MEPOLIZUMAB [Suspect]
     Active Substance: MEPOLIZUMAB
     Dosage: 300 MG
     Route: 058
     Dates: start: 20191127, end: 20191127
  12. MEPOLIZUMAB [Suspect]
     Active Substance: MEPOLIZUMAB
     Dosage: 300 MG
     Route: 058
     Dates: start: 20191225, end: 20191225
  13. MEPOLIZUMAB [Suspect]
     Active Substance: MEPOLIZUMAB
     Dosage: 300 MG
     Route: 058
     Dates: start: 20200129, end: 20200129
  14. MEPOLIZUMAB [Suspect]
     Active Substance: MEPOLIZUMAB
     Dosage: 300 MG
     Route: 058
     Dates: start: 20200226, end: 20200226
  15. MEPOLIZUMAB [Suspect]
     Active Substance: MEPOLIZUMAB
     Dosage: 300 MG
     Route: 058
     Dates: start: 20200323, end: 20200323
  16. MEPOLIZUMAB [Suspect]
     Active Substance: MEPOLIZUMAB
     Dosage: 300 MG
     Route: 058
     Dates: start: 20200420, end: 20200420
  17. MEPOLIZUMAB [Suspect]
     Active Substance: MEPOLIZUMAB
     Dosage: 300 MG
     Route: 058
     Dates: start: 20200518, end: 20200518
  18. MEPOLIZUMAB [Suspect]
     Active Substance: MEPOLIZUMAB
     Dosage: 300 MG
     Route: 058
     Dates: start: 20200622, end: 20200622
  19. MEPOLIZUMAB [Suspect]
     Active Substance: MEPOLIZUMAB
     Dosage: 300 MG
     Route: 058
     Dates: start: 20200720, end: 20200720
  20. MEPOLIZUMAB [Suspect]
     Active Substance: MEPOLIZUMAB
     Dosage: 300 MG
     Route: 058
     Dates: start: 20200812, end: 20200812
  21. MEPOLIZUMAB [Suspect]
     Active Substance: MEPOLIZUMAB
     Dosage: 300 MG
     Route: 058
     Dates: start: 20200907, end: 20200907
  22. MEPOLIZUMAB [Suspect]
     Active Substance: MEPOLIZUMAB
     Dosage: 300 MG
     Route: 058
     Dates: start: 20201005, end: 20201005
  23. MEPOLIZUMAB [Suspect]
     Active Substance: MEPOLIZUMAB
     Dosage: 300 MG
     Route: 058
     Dates: start: 20201102, end: 20201102
  24. MEPOLIZUMAB [Suspect]
     Active Substance: MEPOLIZUMAB
     Dosage: 300 MG
     Route: 058
     Dates: start: 20201130, end: 20201130
  25. POLARAMINE [Suspect]
     Active Substance: DEXCHLORPHENIRAMINE MALEATE
     Indication: Urticaria chronic
  26. FLUTICASONE FUROATE [Suspect]
     Active Substance: FLUTICASONE FUROATE
     Indication: Eosinophilic granulomatosis with polyangiitis
     Dosage: 110 ?G, QD
     Dates: end: 20190709
  27. DECADRON [Suspect]
     Active Substance: DEXAMETHASONE
     Indication: Eosinophilic granulomatosis with polyangiitis
     Dosage: 3 MG, QD
     Dates: end: 20190213
  28. DECADRON [Suspect]
     Active Substance: DEXAMETHASONE
     Indication: Asthma
     Dosage: 2 MG, QD
     Dates: start: 20190214, end: 20190218
  29. DECADRON [Suspect]
     Active Substance: DEXAMETHASONE
     Indication: Asthma
     Dosage: 4 MG, QD
     Dates: start: 20190219, end: 20190226
  30. DECADRON [Suspect]
     Active Substance: DEXAMETHASONE
     Dosage: 2 MG, QD
     Dates: start: 20190227, end: 20190228
  31. DECADRON [Suspect]
     Active Substance: DEXAMETHASONE
     Dosage: 4 MG, QD
     Dates: start: 20190301, end: 20190304
  32. DECADRON [Suspect]
     Active Substance: DEXAMETHASONE
     Dosage: 3 MG, QD
     Dates: start: 20190305, end: 20190403
  33. DECADRON [Suspect]
     Active Substance: DEXAMETHASONE
     Dosage: 2.5 MG, QD
     Dates: start: 20190404, end: 20190410
  34. DECADRON [Suspect]
     Active Substance: DEXAMETHASONE
     Dosage: 2 MG, QD
     Dates: start: 20190411, end: 20190508
  35. DECADRON [Suspect]
     Active Substance: DEXAMETHASONE
     Dosage: 1.5 MG, QD
     Dates: start: 20190509, end: 20190529
  36. DECADRON [Suspect]
     Active Substance: DEXAMETHASONE
     Dosage: 1 MG, QD
     Dates: start: 20190727, end: 20190728
  37. DECADRON [Suspect]
     Active Substance: DEXAMETHASONE
     Dosage: 2 MG, QD
     Dates: start: 20190729, end: 20191002
  38. DECADRON [Suspect]
     Active Substance: DEXAMETHASONE
     Dosage: 1 MG, QD
     Dates: start: 20191003, end: 20191030
  39. DECADRON [Suspect]
     Active Substance: DEXAMETHASONE
     Dosage: 2 MG, QD
     Dates: start: 20191031, end: 20191122
  40. DECADRON [Suspect]
     Active Substance: DEXAMETHASONE
     Dosage: 1 MG, QD
     Dates: start: 20191123, end: 20191129
  41. DECADRON [Suspect]
     Active Substance: DEXAMETHASONE
     Dosage: 3 MG, QD
     Dates: start: 20191130, end: 20191206
  42. DECADRON [Suspect]
     Active Substance: DEXAMETHASONE
     Dosage: 2.5 MG, QD
     Dates: start: 20191207, end: 20191218
  43. DECADRON [Suspect]
     Active Substance: DEXAMETHASONE
     Dosage: 2 MG, QD
     Dates: start: 20191219, end: 20200108
  44. DECADRON [Suspect]
     Active Substance: DEXAMETHASONE
     Dosage: 1 MG, QD
     Dates: start: 20200109, end: 20200116
  45. DECADRON [Suspect]
     Active Substance: DEXAMETHASONE
     Dosage: 4 MG
     Dates: start: 20200116, end: 20200126
  46. DECADRON [Suspect]
     Active Substance: DEXAMETHASONE
     Dosage: 4 MG, QD
     Dates: start: 20200117, end: 20200120
  47. DECADRON [Suspect]
     Active Substance: DEXAMETHASONE
     Dosage: 1 MG, QD
     Dates: start: 20200121, end: 20200311
  48. DECADRON [Suspect]
     Active Substance: DEXAMETHASONE
     Dosage: 1.5 MG, QD
     Dates: start: 20200312, end: 20200407
  49. DECADRON [Suspect]
     Active Substance: DEXAMETHASONE
     Dosage: 1 MG, QD
     Dates: start: 20200408, end: 20200608
  50. DECADRON [Suspect]
     Active Substance: DEXAMETHASONE
     Dosage: 2 MG, QD
     Dates: start: 20200609, end: 20200610
  51. DECADRON [Suspect]
     Active Substance: DEXAMETHASONE
     Dosage: 1 MG, QD
     Dates: start: 20200611, end: 20200701
  52. DECADRON [Suspect]
     Active Substance: DEXAMETHASONE
     Dosage: 2 MG, QD
     Dates: start: 20200702, end: 20200706
  53. DECADRON [Suspect]
     Active Substance: DEXAMETHASONE
     Dosage: 3 MG, QD
     Dates: start: 20200707, end: 20200713
  54. DECADRON [Suspect]
     Active Substance: DEXAMETHASONE
     Dosage: 2 MG, QD
     Dates: start: 20200714, end: 20200727
  55. DECADRON [Suspect]
     Active Substance: DEXAMETHASONE
     Dosage: 1.5 MG, QD
     Dates: start: 20200728, end: 20200804
  56. DECADRON [Suspect]
     Active Substance: DEXAMETHASONE
     Dosage: 1 MG, QD
     Dates: start: 20200805, end: 20200914
  57. DECADRON [Suspect]
     Active Substance: DEXAMETHASONE
     Dosage: 2 MG, QD
     Dates: start: 20200915
  58. CELESTAMINE [Concomitant]
     Active Substance: BETAMETHASONE\DEXCHLORPHENIRAMINE MALEATE
     Dosage: BETAMETHASONE 0.5 MG, D-CHLORPHENIRAMINE MALEATE 4 MG, QD
     Dates: end: 20200720
  59. CELESTAMINE [Concomitant]
     Active Substance: BETAMETHASONE\DEXCHLORPHENIRAMINE MALEATE
     Dosage: BETAMETHASONE 1.0 MG, D-CHLORPHENIRAMINE MALEATE 8 MG, QD
     Dates: start: 20200721, end: 20200804
  60. CELESTAMINE [Concomitant]
     Active Substance: BETAMETHASONE\DEXCHLORPHENIRAMINE MALEATE
     Dosage: BETAMETHASONE 0.75 MG, D-CHLORPHENIRAMINE MALEATE 6 MG, QD
     Dates: start: 20200805, end: 20200914
  61. CELESTAMINE [Concomitant]
     Active Substance: BETAMETHASONE\DEXCHLORPHENIRAMINE MALEATE
     Dosage: BETAMETHASONE 0.5 MG, D-CHLORPHENIRAMINE MALEATE 4 MG, QD
     Dates: start: 20200913
  62. SOLU-CORTEF [Concomitant]
     Active Substance: HYDROCORTISONE SODIUM SUCCINATE
     Indication: Asthma
     Dosage: 200 MG, QD
     Route: 042
     Dates: start: 20200119, end: 20200119
  63. SOLU-CORTEF [Concomitant]
     Active Substance: HYDROCORTISONE SODIUM SUCCINATE
     Dosage: UNK
     Dates: start: 20200116, end: 20200126
  64. DEXAMETHASONE SODIUM PHOSPHATE [Concomitant]
     Active Substance: DEXAMETHASONE PHOSPHATE\DEXAMETHASONE SODIUM PHOSPHATE
     Indication: Asthma
     Dosage: 3.3 MG, QD
     Route: 042
     Dates: start: 20191122, end: 20191129
  65. DEXAMETHASONE SODIUM PHOSPHATE [Concomitant]
     Active Substance: DEXAMETHASONE PHOSPHATE\DEXAMETHASONE SODIUM PHOSPHATE
     Dosage: UNK UNK, QD
     Dates: start: 20191122, end: 20191207
  66. DEXAMETHASONE SODIUM PHOSPHATE [Concomitant]
     Active Substance: DEXAMETHASONE PHOSPHATE\DEXAMETHASONE SODIUM PHOSPHATE
     Dosage: 1.65 MG, QD
     Route: 042
     Dates: start: 20200121, end: 20200121
  67. DEXAMETHASONE SODIUM PHOSPHATE [Concomitant]
     Active Substance: DEXAMETHASONE PHOSPHATE\DEXAMETHASONE SODIUM PHOSPHATE
     Dosage: 3.3 MG, QD
     Route: 042
     Dates: start: 20200602, end: 20200608
  68. DEXAMETHASONE SODIUM PHOSPHATE [Concomitant]
     Active Substance: DEXAMETHASONE PHOSPHATE\DEXAMETHASONE SODIUM PHOSPHATE
     Dosage: 3.3 MG, QD
     Route: 042
     Dates: start: 20200918, end: 20200923
  69. SYMBICORT [Concomitant]
     Active Substance: BUDESONIDE\FORMOTEROL FUMARATE DIHYDRATE
     Indication: Eosinophilic granulomatosis with polyangiitis
     Dosage: BUD 640 ?G FOR 18 ?G, PER DAY
     Route: 055
  70. Myser [Concomitant]
     Dosage: ADEQUATE DOSE, QD
     Dates: start: 20191211
  71. BREZTRI [Concomitant]
     Active Substance: BUDESONIDE\FORMOTEROL\GLYCOPYRROLATE
     Indication: Eosinophilic granulomatosis with polyangiitis
     Dosage: BUD 640 ?G GLY 36 ?G FOR 20 ?G, PER DAY
     Route: 055
     Dates: start: 20200526
  72. DIFLUPREDNATE [Concomitant]
     Active Substance: DIFLUPREDNATE
     Dosage: ADEQUATE DOSE, QD
     Dates: start: 20200831
  73. MONTELUKAST [Concomitant]
     Active Substance: MONTELUKAST SODIUM
     Indication: Eosinophilic granulomatosis with polyangiitis
     Dosage: UNK
  74. Asverin [Concomitant]
     Indication: Eosinophilic granulomatosis with polyangiitis
     Dosage: UNK
  75. CARBOCYSTEINE [Concomitant]
     Active Substance: CARBOCYSTEINE
     Indication: Eosinophilic granulomatosis with polyangiitis
     Dosage: UNK
  76. MAGNESIUM OXIDE [Concomitant]
     Active Substance: MAGNESIUM OXIDE
     Indication: Prophylaxis
     Dosage: UNK
  77. CEFDITOREN PIVOXIL [Concomitant]
     Active Substance: CEFDITOREN PIVOXIL
     Indication: Prophylaxis
     Dosage: UNK
  78. NEXIUM [Concomitant]
     Active Substance: ESOMEPRAZOLE MAGNESIUM
     Indication: Prophylaxis
     Dosage: UNK
  79. CALONAL [Concomitant]
     Active Substance: ACETAMINOPHEN
     Indication: Eosinophilic granulomatosis with polyangiitis
     Dosage: UNK
     Dates: start: 20200324, end: 20200518
  80. CALONAL [Concomitant]
     Active Substance: ACETAMINOPHEN
     Indication: Headache
  81. HEPARINOID [Concomitant]
     Dosage: UNK
  82. BILASTINE [Concomitant]
     Active Substance: BILASTINE
     Indication: Acne
     Dosage: UNK
     Dates: start: 20190411, end: 20190826
  83. CODEINE PHOSPHATE [Concomitant]
     Active Substance: CODEINE PHOSPHATE
     Indication: Eosinophilic granulomatosis with polyangiitis
     Dosage: UNK
  84. SPIRIVA RESPIMAT [Concomitant]
     Active Substance: TIOTROPIUM BROMIDE
     Indication: Eosinophilic granulomatosis with polyangiitis
     Dosage: UNK
  85. CLARITHROMYCIN [Concomitant]
     Active Substance: CLARITHROMYCIN
     Indication: Prophylaxis
     Dosage: UNK
  86. RUPAFIN [Concomitant]
     Active Substance: RUPATADINE FUMARATE
     Dosage: UNK
  87. Talion [Concomitant]
     Dosage: UNK
  88. ALLEGRA [Concomitant]
     Active Substance: FEXOFENADINE HYDROCHLORIDE
     Dosage: UNK
  89. BIFIDOBACTERIUM SPP. [Concomitant]
     Active Substance: BIFIDOBACTERIUM SPP.
     Indication: Prophylaxis
     Dosage: UNK
  90. EBASTINE [Concomitant]
     Active Substance: EBASTINE
     Dosage: UNK
  91. PROCATEROL HYDROCHLORIDE [Concomitant]
     Active Substance: PROCATEROL HYDROCHLORIDE
     Indication: Eosinophilic granulomatosis with polyangiitis
     Dosage: UNK
     Dates: start: 20191122, end: 20191207
  92. PROCATEROL HYDROCHLORIDE [Concomitant]
     Active Substance: PROCATEROL HYDROCHLORIDE
     Indication: Asthma
  93. LOXOPROFEN SODIUM [Concomitant]
     Active Substance: LOXOPROFEN SODIUM
     Indication: Eosinophilic granulomatosis with polyangiitis
     Dosage: UNK
  94. Azunol [Concomitant]
     Dosage: UNK
  95. EPIPEN [Concomitant]
     Active Substance: EPINEPHRINE
     Dosage: UNK
  96. XYZAL [Concomitant]
     Active Substance: LEVOCETIRIZINE DIHYDROCHLORIDE
     Dosage: UNK
  97. MIYA-BM [Concomitant]
     Active Substance: CLOSTRIDIUM BUTYRICUM SPORES STRAIN M-55
     Indication: Prophylaxis
     Dosage: UNK
  98. REBAMIPIDE [Concomitant]
     Active Substance: REBAMIPIDE
     Indication: Prophylaxis
     Dosage: UNK
  99. GLYCOSAMINOGLYCANS [Concomitant]
     Active Substance: GLYCOSAMINOGLYCANS
     Dosage: UNK
  100. MIYA-BM [Concomitant]
     Active Substance: CLOSTRIDIUM BUTYRICUM SPORES STRAIN M-55
     Indication: Prophylaxis
     Dosage: UNK
  101. TRAMCET [Concomitant]
     Active Substance: ACETAMINOPHEN\TRAMADOL
     Indication: Eosinophilic granulomatosis with polyangiitis
     Dosage: UNK
  102. AMITIZA [Concomitant]
     Active Substance: LUBIPROSTONE
     Indication: Prophylaxis
     Dosage: UNK
  103. ALLELOCK [Concomitant]
     Active Substance: OLOPATADINE HYDROCHLORIDE
     Dosage: UNK
  104. OLOPATADINE HYDROCHLORIDE [Concomitant]
     Active Substance: OLOPATADINE HYDROCHLORIDE
     Dosage: UNK
  105. FAMOTIDINE [Concomitant]
     Active Substance: FAMOTIDINE
     Indication: Prophylaxis
     Dosage: UNK
  106. PROTOPIC [Concomitant]
     Active Substance: TACROLIMUS
     Dosage: ADEQUATE DOSE, QD
     Dates: start: 20200928, end: 20210323
  107. MINOCYCLINE HYDROCHLORIDE [Concomitant]
     Active Substance: MINOCYCLINE HYDROCHLORIDE
     Dosage: UNK

REACTIONS (10)
  - Asthma [Recovered/Resolved]
  - Anaphylactic reaction [Recovered/Resolved]
  - Asthma [Recovered/Resolved]
  - Asthma [Recovered/Resolved]
  - Acne [Recovered/Resolved]
  - Herpes zoster [Recovering/Resolving]
  - Post herpetic neuralgia [Recovered/Resolved]
  - Headache [Recovered/Resolved]
  - Aphthous ulcer [Recovered/Resolved]
  - Asthma [Recovered/Resolved]

NARRATIVE: CASE EVENT DATE: 20190219
